FAERS Safety Report 6992301-8 (Version None)
Quarter: 2010Q3

REPORT INFORMATION
  Report Type: 
  Country: None (occurrence: None)
  Receive Date: 20100917
  Receipt Date: 20100913
  Transmission Date: 20110219
  Serious: Yes (Death, Other)
  Sender: FDA-Public Use
  Company Number: PHHY2010FR60129

PATIENT
  Age: 72 Year
  Sex: Male

DRUGS (4)
  1. CYCLOSPORINE [Suspect]
     Indication: AGRANULOCYTOSIS
     Dosage: 50 MG, UNK
  2. PREDNISONE [Concomitant]
     Dosage: 60 MG/DAY
  3. PREDNISONE [Concomitant]
     Dosage: 10 MG/DAY
  4. LENOGRASTIM [Concomitant]
     Dosage: 263 G, UNK

REACTIONS (2)
  - GASTRIC HAEMORRHAGE [None]
  - NEUTROPHIL COUNT INCREASED [None]
